FAERS Safety Report 21654439 (Version 1)
Quarter: 2022Q4

REPORT INFORMATION
  Report Type: Spontaneous
  Country: IT (occurrence: IT)
  Receive Date: 20221129
  Receipt Date: 20221129
  Transmission Date: 20230113
  Serious: Yes (Other)
  Sender: FDA-Public Use
  Company Number: IT-AMGEN-ITASP2022202518

PATIENT
  Sex: Female
  Weight: 62 kg

DRUGS (2)
  1. TRASTUZUMAB [Suspect]
     Active Substance: TRASTUZUMAB
     Indication: Breast cancer
     Dosage: 350MG FOR 30 MINUTES, EVERY 3 WEEKS
     Route: 040
     Dates: start: 20210301, end: 20221116
  2. DEXAMETHASONE [Concomitant]
     Active Substance: DEXAMETHASONE
     Indication: Drug hypersensitivity
     Dosage: 8MG FOR 15 MINUTES
     Route: 040
     Dates: start: 20210301, end: 20221116

REACTIONS (7)
  - Loss of consciousness [Recovering/Resolving]
  - Limb discomfort [Not Recovered/Not Resolved]
  - Asthenia [Recovering/Resolving]
  - Nausea [Recovering/Resolving]
  - Vertigo [Recovering/Resolving]
  - Onychoclasis [Not Recovered/Not Resolved]
  - Feeling cold [Recovering/Resolving]

NARRATIVE: CASE EVENT DATE: 20210301
